FAERS Safety Report 20795742 (Version 2)
Quarter: 2022Q3

REPORT INFORMATION
  Report Type: Spontaneous
  Country: US (occurrence: US)
  Receive Date: 20220506
  Receipt Date: 20220921
  Transmission Date: 20221026
  Serious: Yes (Other)
  Sender: FDA-Public Use
  Company Number: US-TEVA-2022-US-2034675

PATIENT
  Sex: Male

DRUGS (3)
  1. VALSARTAN [Suspect]
     Active Substance: VALSARTAN
     Indication: Hypertension
     Dosage: DOSE: 80 MG
     Route: 065
     Dates: start: 2015, end: 2018
  2. VALSARTAN [Suspect]
     Active Substance: VALSARTAN
     Dosage: DOSE: 160 MG
     Route: 065
     Dates: start: 2017
  3. VALSARTAN [Suspect]
     Active Substance: VALSARTAN
     Indication: Hypertension
     Dosage: DOSE: 80 MG
     Route: 065
     Dates: start: 2015, end: 2018

REACTIONS (1)
  - Prostate cancer [Unknown]
